FAERS Safety Report 8921570 (Version 1)
Quarter: 2012Q4

REPORT INFORMATION
  Report Type: Report from Study
  Country: CA (occurrence: CA)
  Receive Date: 20121121
  Receipt Date: 20121121
  Transmission Date: 20130627
  Serious: Yes (Other)
  Sender: FDA-Public Use
  Company Number: CA-JNJFOC-20121106337

PATIENT
  Sex: Male
  Weight: 98 kg

DRUGS (4)
  1. REMICADE [Suspect]
     Indication: CROHN^S DISEASE
     Dosage: therapy duration 2 hours
     Route: 042
     Dates: start: 20100606
  2. ASA [Concomitant]
     Route: 065
  3. SALOFALK [Concomitant]
     Route: 065
  4. PENTASA [Concomitant]
     Route: 065

REACTIONS (2)
  - Ligament injury [Unknown]
  - Bone fragmentation [Unknown]
